FAERS Safety Report 9975050 (Version 1)
Quarter: 2014Q1

REPORT INFORMATION
  Report Type: Report from Study
  Country: US (occurrence: US)
  Receive Date: 20140306
  Receipt Date: 20140306
  Transmission Date: 20141002
  Serious: No
  Sender: FDA-Public Use
  Company Number: US-ABBVIE-13P-163-1156779-00

PATIENT
  Age: 46 Year
  Sex: Female

DRUGS (5)
  1. HUMIRA [Suspect]
     Indication: ANKYLOSING SPONDYLITIS
     Dates: start: 20130823
  2. SULFASALAZINE [Concomitant]
     Indication: ANKYLOSING SPONDYLITIS
     Route: 048
  3. SULFASALAZINE [Concomitant]
     Dosage: IF NEEDED
     Route: 048
  4. ARTHROTEC [Concomitant]
     Indication: ANKYLOSING SPONDYLITIS
     Route: 048
  5. ARTHROTEC [Concomitant]
     Route: 048

REACTIONS (7)
  - Swelling [Not Recovered/Not Resolved]
  - Drug ineffective [Not Recovered/Not Resolved]
  - Arthralgia [Not Recovered/Not Resolved]
  - Mobility decreased [Not Recovered/Not Resolved]
  - Stress [Not Recovered/Not Resolved]
  - Stress at work [Not Recovered/Not Resolved]
  - Myalgia [Not Recovered/Not Resolved]
